FAERS Safety Report 25208480 (Version 1)
Quarter: 2025Q2

REPORT INFORMATION
  Report Type: Spontaneous
  Country: US (occurrence: None)
  Receive Date: 20250416
  Receipt Date: 20250416
  Transmission Date: 20250717
  Serious: Yes (unspecified)
  Sender: FDA-CTU
  Company Number: None

PATIENT
  Age: 16 Year
  Sex: Female

DRUGS (1)
  1. RISPERIDONE [Suspect]
     Active Substance: RISPERIDONE
     Indication: Bipolar disorder
     Dates: start: 20250228, end: 20250330

REACTIONS (3)
  - Galactorrhoea [None]
  - Bipolar disorder [None]
  - Therapy interrupted [None]

NARRATIVE: CASE EVENT DATE: 20250228
